FAERS Safety Report 26130079 (Version 1)
Quarter: 2025Q4

REPORT INFORMATION
  Report Type: Spontaneous
  Country: CA (occurrence: CA)
  Receive Date: 20251208
  Receipt Date: 20251208
  Transmission Date: 20260117
  Serious: Yes (Hospitalization)
  Sender: JOHNSON AND JOHNSON
  Company Number: CA-JNJFOC-20251209459

PATIENT
  Age: 63 Year
  Sex: Male
  Weight: 76 kg

DRUGS (1)
  1. INFLIXIMAB [Suspect]
     Active Substance: INFLIXIMAB
     Indication: Colitis ulcerative
     Route: 041

REACTIONS (3)
  - Balance disorder [Recovering/Resolving]
  - Dizziness [Recovering/Resolving]
  - Labyrinthitis [Recovering/Resolving]
